FAERS Safety Report 19903063 (Version 1)
Quarter: 2021Q4

REPORT INFORMATION
  Report Type: Spontaneous
  Country: PL (occurrence: PL)
  Receive Date: 20211001
  Receipt Date: 20211001
  Transmission Date: 20220303
  Serious: Yes (Hospitalization)
  Sender: FDA-Public Use
  Company Number: PL-NOVOPROD-849222

PATIENT
  Sex: Female
  Weight: 109 kg

DRUGS (5)
  1. INSULIN HUMAN [Suspect]
     Active Substance: INSULIN HUMAN
     Indication: Gestational diabetes
     Dosage: UNK QD
     Route: 058
     Dates: start: 202106
  2. INSULIN HUMAN [Suspect]
     Active Substance: INSULIN HUMAN
     Dosage: UNK BID
     Route: 058
  3. METFORMIN [Concomitant]
     Active Substance: METFORMIN HYDROCHLORIDE
     Indication: Gestational diabetes
     Dosage: UNK
  4. INSULIN ASPART [Suspect]
     Active Substance: INSULIN ASPART
     Indication: Gestational diabetes
     Dosage: UNK  QD ( BEFORE AN EVENING MEAL)
     Route: 058
     Dates: start: 202106
  5. INSULIN ASPART [Suspect]
     Active Substance: INSULIN ASPART
     Dosage: UNK  BID (BEFORE EACH MEAL)
     Route: 058

REACTIONS (3)
  - Complication of pregnancy [Unknown]
  - Hyperglycaemia [Unknown]
  - Maternal exposure during pregnancy [Not Recovered/Not Resolved]
